FAERS Safety Report 17140230 (Version 4)
Quarter: 2022Q4

REPORT INFORMATION
  Report Type: Report from Study
  Country: CO (occurrence: CO)
  Receive Date: 20191211
  Receipt Date: 20221203
  Transmission Date: 20230112
  Serious: Yes (Hospitalization, Other)
  Sender: FDA-Public Use
  Company Number: None

PATIENT
  Age: 35 Year
  Sex: Female
  Weight: 61 kg

DRUGS (2)
  1. COSENTYX [Suspect]
     Active Substance: SECUKINUMAB
     Indication: Psoriasis
     Dosage: 300 MG, QMO
     Route: 058
     Dates: start: 20180615, end: 20191024
  2. COSENTYX [Suspect]
     Active Substance: SECUKINUMAB
     Dosage: 300 MG, QMO
     Route: 058

REACTIONS (7)
  - Condition aggravated [Unknown]
  - Urinary tract infection [Recovered/Resolved]
  - Oral herpes [Recovering/Resolving]
  - Oral discomfort [Recovering/Resolving]
  - Cheilitis [Recovered/Resolved]
  - Nail disorder [Unknown]
  - Rash [Unknown]

NARRATIVE: CASE EVENT DATE: 20191101
